FAERS Safety Report 6942519-5 (Version None)
Quarter: 2010Q3

REPORT INFORMATION
  Report Type: 
  Country: None (occurrence: None)
  Receive Date: 20100826
  Receipt Date: 20100818
  Transmission Date: 20110219
  Serious: Yes (Hospitalization, Other)
  Sender: FDA-Public Use
  Company Number: US-ELI_LILLY_AND_COMPANY-US201008005409

PATIENT
  Sex: Male
  Weight: 112.93 kg

DRUGS (7)
  1. BYETTA [Suspect]
     Indication: TYPE 2 DIABETES MELLITUS
     Dosage: 5 UG, 2/D
     Route: 058
  2. BYETTA [Suspect]
     Dosage: 10 UG, 2/D
     Route: 058
  3. METFORMIN [Concomitant]
     Indication: TYPE 2 DIABETES MELLITUS
  4. JANUVIA [Concomitant]
     Indication: TYPE 2 DIABETES MELLITUS
  5. FUROSEMIDE [Concomitant]
  6. LISINOPRIL [Concomitant]
  7. GLIPIZIDE [Concomitant]
     Indication: TYPE 2 DIABETES MELLITUS
     Dosage: 6 MG, 2/D

REACTIONS (9)
  - BLOOD GLUCOSE DECREASED [None]
  - BLOOD GLUCOSE INCREASED [None]
  - DECREASED APPETITE [None]
  - DEHYDRATION [None]
  - HYPOPHAGIA [None]
  - OFF LABEL USE [None]
  - OVERDOSE [None]
  - RENAL FAILURE [None]
  - VOMITING [None]
